FAERS Safety Report 6361679-0 (Version None)
Quarter: 2009Q3

REPORT INFORMATION
  Report Type: 
  Country: None (occurrence: None)
  Receive Date: 20090918
  Receipt Date: 20090910
  Transmission Date: 20100115
  Serious: Yes (Other)
  Sender: FDA-Public Use
  Company Number: JP-MERCK-0908USA00135M

PATIENT
  Age: 34 Year
  Sex: Female
  Weight: 50 kg

DRUGS (9)
  1. DECADRON [Suspect]
     Indication: FOETAL DISORDER
     Route: 048
     Dates: start: 20080806, end: 20081020
  2. DECADRON [Suspect]
     Route: 048
     Dates: start: 20081021, end: 20081104
  3. DECADRON [Suspect]
     Route: 048
     Dates: start: 20081105, end: 20081118
  4. DECADRON [Suspect]
     Route: 048
     Dates: start: 20081203, end: 20081215
  5. DECADRON [Suspect]
     Route: 048
     Dates: start: 20081216, end: 20081229
  6. DECADRON [Suspect]
     Route: 048
     Dates: start: 20081230, end: 20090113
  7. DECADRON [Suspect]
     Route: 048
     Dates: start: 20081119, end: 20081202
  8. UTEMERIN [Concomitant]
     Indication: FOETAL HEART RATE DECREASED
     Route: 042
     Dates: start: 20080806, end: 20081014
  9. UTEMERIN [Concomitant]
     Route: 042
     Dates: start: 20081015, end: 20081020

REACTIONS (2)
  - DRUG EXPOSURE DURING PREGNANCY [None]
  - PREMATURE RUPTURE OF MEMBRANES [None]
